FAERS Safety Report 17876478 (Version 1)
Quarter: 2020Q2

REPORT INFORMATION
  Report Type: Spontaneous
  Country: US (occurrence: US)
  Receive Date: 20200609
  Receipt Date: 20200609
  Transmission Date: 20200714
  Serious: Yes (Other)
  Sender: FDA-Public Use
  Company Number: US-MACLEODS PHARMACEUTICALS US LTD-MAC2020026672

PATIENT

DRUGS (3)
  1. ALBUTEROL. [Suspect]
     Active Substance: ALBUTEROL
     Indication: ASTHMA EXERCISE INDUCED
     Dosage: UNK, QD (ONE TO TWO PUFFS A DAY)
  2. TRIAMCINOLONE ACETONIDE. [Suspect]
     Active Substance: TRIAMCINOLONE ACETONIDE
     Indication: ASTHMA EXERCISE INDUCED
     Dosage: UNK, QD (ONE TO TWO PUFFS PER DAY)
  3. TRIAMCINOLONE ACETONIDE. [Suspect]
     Active Substance: TRIAMCINOLONE ACETONIDE
     Dosage: 3 DOSAGE FORM, BID (THREE PUFFS TWICE A DAY)

REACTIONS (3)
  - Hypertension [Unknown]
  - Serous retinal detachment [Recovered/Resolved]
  - Chorioretinopathy [Recovered/Resolved]

NARRATIVE: CASE EVENT DATE: 1993
